FAERS Safety Report 8397203-0 (Version None)
Quarter: 2012Q2

REPORT INFORMATION
  Report Type: 
  Country: None (occurrence: None)
  Receive Date: 20120530
  Receipt Date: 20120524
  Transmission Date: 20120825
  Serious: Yes (Hospitalization)
  Sender: FDA-Public Use
  Company Number: FR-MERCK-1205FRA00092

PATIENT
  Age: 60 Year
  Sex: Male

DRUGS (4)
  1. MARAVIROC [Suspect]
     Indication: HIV INFECTION
     Route: 048
     Dates: start: 20110922, end: 20111017
  2. ISENTRESS [Suspect]
     Indication: HIV INFECTION
     Route: 048
     Dates: start: 20110922, end: 20111017
  3. SULFAMETHOXAZOLE AND TRIMETHOPRIM [Concomitant]
     Route: 048
     Dates: start: 20110919, end: 20111014
  4. ABACAVIR SULFATE AND LAMIVUDINE [Concomitant]
     Indication: HIV INFECTION
     Route: 048

REACTIONS (2)
  - EOSINOPHIL COUNT INCREASED [None]
  - RASH MACULO-PAPULAR [None]
